FAERS Safety Report 5238941-8 (Version None)
Quarter: 2007Q1

REPORT INFORMATION
  Report Type: 
  Country: None (occurrence: None)
  Receive Date: 20070209
  Receipt Date: 20070130
  Transmission Date: 20070707
  Serious: Yes (Hospitalization)
  Sender: FDA-Public Use
  Company Number: 2006BI019181

PATIENT
  Age: 56 Year
  Sex: Male

DRUGS (1)
  1. AVONEX [Suspect]
     Indication: MULTIPLE SCLEROSIS
     Dosage: 30 UG;QW; IM
     Route: 030
     Dates: start: 20051015, end: 20061221

REACTIONS (5)
  - COLLAPSE OF LUNG [None]
  - CONDITION AGGRAVATED [None]
  - CONSTIPATION [None]
  - PNEUMOTHORAX [None]
  - PROGRESSIVE MULTIPLE SCLEROSIS [None]
